FAERS Safety Report 12294366 (Version 1)
Quarter: 2016Q2

REPORT INFORMATION
  Report Type: Spontaneous
  Country: US (occurrence: US)
  Receive Date: 20160422
  Receipt Date: 20160422
  Transmission Date: 20160815
  Serious: Yes (Other)
  Sender: FDA-Public Use
  Company Number: US-INDICUS PHARMA-000408

PATIENT
  Age: 56 Year
  Sex: Female
  Weight: 118 kg

DRUGS (12)
  1. LINUM USITATISSIMUM [Concomitant]
  2. FISH OIL [Concomitant]
     Active Substance: FISH OIL
  3. LISINOPRIL/LISINOPRIL DIHYDRATE [Concomitant]
  4. INSULIN LISPRO/INSULIN LISPRO PROTAMINE SUSPE [Concomitant]
  5. LIRAGLUTID [Concomitant]
     Active Substance: LIRAGLUTIDE
  6. INSULIN GLARGINE [Concomitant]
     Active Substance: INSULIN GLARGINE
     Dosage: 10 UNITS
  7. VALSARTAN. [Concomitant]
     Active Substance: VALSARTAN
  8. METFORMIN [Suspect]
     Active Substance: METFORMIN HYDROCHLORIDE
     Indication: TYPE 2 DIABETES MELLITUS
     Dosage: IMMEDIATE RELEASE
  9. METOPROLOL. [Concomitant]
     Active Substance: METOPROLOL
  10. COLECALCIFEROL [Concomitant]
     Active Substance: CHOLECALCIFEROL
     Dosage: 1000 UNITS
  11. PRAVASTATIN/PRAVASTATIN SODIUM [Concomitant]
  12. ACETYLSALICYLIC ACID [Concomitant]
     Active Substance: ASPIRIN

REACTIONS (2)
  - Diarrhoea [Recovered/Resolved]
  - Fixed drug eruption [Recovered/Resolved]
